FAERS Safety Report 20631325 (Version 1)
Quarter: 2022Q1

REPORT INFORMATION
  Report Type: Spontaneous
  Country: US (occurrence: None)
  Receive Date: 20220323
  Receipt Date: 20220323
  Transmission Date: 20220424
  Serious: Yes (Life-Threatening)
  Sender: FDA-Public Use
  Company Number: None

PATIENT
  Age: 40 Year
  Sex: Female
  Weight: 55.8 kg

DRUGS (2)
  1. DIMETHYL FUMARATE [Suspect]
     Active Substance: DIMETHYL FUMARATE
     Indication: Multiple sclerosis
     Dosage: FREQUENCY : TWICE A DAY;?
     Route: 048
     Dates: start: 20210225, end: 20220321
  2. Ioversol 320 Optiray [Concomitant]
     Dates: start: 20220318, end: 20220318

REACTIONS (4)
  - Flushing [None]
  - Rash [None]
  - Swelling face [None]
  - Pharyngeal swelling [None]

NARRATIVE: CASE EVENT DATE: 20220319
